FAERS Safety Report 10043539 (Version 1)
Quarter: 2014Q1

REPORT INFORMATION
  Report Type: Spontaneous
  Country: US (occurrence: US)
  Receive Date: 20140328
  Receipt Date: 20140328
  Transmission Date: 20141002
  Serious: Yes (Other)
  Sender: FDA-Public Use
  Company Number: US-BEH-2014041273

PATIENT
  Sex: Male

DRUGS (1)
  1. HIZENTRA [Suspect]

REACTIONS (1)
  - Neutropenia [Unknown]
